FAERS Safety Report 24545927 (Version 1)
Quarter: 2024Q4

REPORT INFORMATION
  Report Type: Spontaneous
  Country: US (occurrence: US)
  Receive Date: 20241024
  Receipt Date: 20241024
  Transmission Date: 20250114
  Serious: No
  Sender: UPSHER SMITH LABORATORIES
  Company Number: US-UPSHER-SMITH LABORATORIES, LLC-2024USL00513

PATIENT
  Age: 80 Year
  Sex: Male

DRUGS (3)
  1. JANTOVEN [Suspect]
     Active Substance: WARFARIN SODIUM
     Indication: Coagulopathy
     Dosage: 3 MG, 1X/DAY
     Dates: start: 202406, end: 202406
  2. JANTOVEN [Suspect]
     Active Substance: WARFARIN SODIUM
     Indication: Coagulopathy
     Dosage: 4 MG, 1X/DAY
     Dates: start: 202406, end: 202406
  3. JANTOVEN [Suspect]
     Active Substance: WARFARIN SODIUM
     Dosage: 4 MG, 1X/DAY
     Dates: start: 202406, end: 202406

REACTIONS (1)
  - International normalised ratio decreased [Recovered/Resolved]

NARRATIVE: CASE EVENT DATE: 20240601
